FAERS Safety Report 6871690-9 (Version None)
Quarter: 2010Q3

REPORT INFORMATION
  Report Type: 
  Country: None (occurrence: None)
  Receive Date: 20100723
  Receipt Date: 20100713
  Transmission Date: 20110219
  Serious: Yes (Death, Hospitalization)
  Sender: FDA-Public Use
  Company Number: A0731269A

PATIENT
  Sex: Male
  Weight: 90.9 kg

DRUGS (4)
  1. AVANDIA [Suspect]
     Dosage: 4MG IN THE MORNING
     Route: 048
     Dates: end: 20070101
  2. TOPROL-XL [Concomitant]
     Dates: start: 20050101
  3. CARDIZEM [Concomitant]
     Dates: start: 19880101
  4. NITROGLYCERIN [Concomitant]
     Dates: start: 19880101

REACTIONS (6)
  - CARDIAC FAILURE CONGESTIVE [None]
  - CHEST PAIN [None]
  - DEATH [None]
  - INJURY [None]
  - MYOCARDIAL INFARCTION [None]
  - PAIN [None]
